FAERS Safety Report 14500638 (Version 1)
Quarter: 2018Q1

REPORT INFORMATION
  Report Type: Spontaneous
  Country: US (occurrence: US)
  Receive Date: 20180207
  Receipt Date: 20180207
  Transmission Date: 20180509
  Serious: No
  Sender: FDA-Public Use
  Company Number: US-AMGEN-USASP2017151928

PATIENT
  Sex: Male

DRUGS (1)
  1. NEULASTA [Suspect]
     Active Substance: PEGFILGRASTIM
     Indication: NEUTROPENIA
     Dosage: 6 MG, CYCLICAL (WITH EACH CHEMO CYCLE)
     Route: 065

REACTIONS (3)
  - Wrong technique in product usage process [Unknown]
  - Cognitive disorder [Unknown]
  - Application site pain [Unknown]

NARRATIVE: CASE EVENT DATE: 201710
